FAERS Safety Report 10424367 (Version 2)
Quarter: 2014Q4

REPORT INFORMATION
  Report Type: Spontaneous
  Country: US (occurrence: US)
  Receive Date: 20140902
  Receipt Date: 20141125
  Transmission Date: 20150528
  Serious: Yes (Death)
  Sender: FDA-Public Use
  Company Number: US-BRISTOL-MYERS SQUIBB COMPANY-21330253

PATIENT
  Age: 75 Year
  Sex: Male
  Weight: 108.39 kg

DRUGS (3)
  1. SUTENT [Suspect]
     Active Substance: SUNITINIB MALATE
     Indication: RENAL CELL CARCINOMA
     Route: 048
     Dates: start: 20140617, end: 20140703
  2. METOPROLOL [Concomitant]
     Active Substance: METOPROLOL
     Indication: HYPERTENSION
  3. COUMADIN [Suspect]
     Active Substance: WARFARIN SODIUM
     Indication: COAGULOPATHY
     Dates: end: 20140703

REACTIONS (4)
  - Hepatic failure [Fatal]
  - Renal cancer metastatic [Fatal]
  - Coagulopathy [Fatal]
  - Dry mouth [Recovering/Resolving]

NARRATIVE: CASE EVENT DATE: 2014
